FAERS Safety Report 24710008 (Version 1)
Quarter: 2024Q4

REPORT INFORMATION
  Report Type: Spontaneous
  Country: US (occurrence: US)
  Receive Date: 20241209
  Receipt Date: 20241209
  Transmission Date: 20250114
  Serious: Yes (Other)
  Sender: HIKMA
  Company Number: US-MLMSERVICE-20241122-PI262373-00128-3

PATIENT
  Age: 49 Year
  Sex: Female

DRUGS (24)
  1. BLEOMYCIN [Suspect]
     Active Substance: BLEOMYCIN SULFATE
     Indication: Hodgkin^s disease
     Dosage: 4 CYCLES
     Route: 065
     Dates: start: 2018, end: 2018
  2. BLEOMYCIN [Suspect]
     Active Substance: BLEOMYCIN SULFATE
     Indication: Metastases to adrenals
  3. BLEOMYCIN [Suspect]
     Active Substance: BLEOMYCIN SULFATE
     Indication: Metastases to liver
  4. BLEOMYCIN [Suspect]
     Active Substance: BLEOMYCIN SULFATE
     Indication: Metastases to lymph nodes
  5. BLEOMYCIN [Suspect]
     Active Substance: BLEOMYCIN SULFATE
     Indication: Intestinal metastasis
  6. BLEOMYCIN [Suspect]
     Active Substance: BLEOMYCIN SULFATE
     Indication: Metastases to peritoneum
  7. DACARBAZINE [Suspect]
     Active Substance: DACARBAZINE
     Indication: Hodgkin^s disease
     Dosage: 4 CYCLES
     Route: 065
     Dates: start: 2018, end: 2018
  8. DACARBAZINE [Suspect]
     Active Substance: DACARBAZINE
     Indication: Metastases to adrenals
  9. DACARBAZINE [Suspect]
     Active Substance: DACARBAZINE
     Indication: Metastases to liver
  10. DACARBAZINE [Suspect]
     Active Substance: DACARBAZINE
     Indication: Metastases to lymph nodes
  11. DACARBAZINE [Suspect]
     Active Substance: DACARBAZINE
     Indication: Intestinal metastasis
  12. DACARBAZINE [Suspect]
     Active Substance: DACARBAZINE
     Indication: Metastases to peritoneum
  13. DOXORUBICIN [Suspect]
     Active Substance: DOXORUBICIN
     Indication: Hodgkin^s disease
     Dosage: 4 CYCLES
     Route: 065
     Dates: start: 2018, end: 2018
  14. DOXORUBICIN [Suspect]
     Active Substance: DOXORUBICIN
     Indication: Metastases to adrenals
  15. DOXORUBICIN [Suspect]
     Active Substance: DOXORUBICIN
     Indication: Metastases to liver
  16. DOXORUBICIN [Suspect]
     Active Substance: DOXORUBICIN
     Indication: Metastases to lymph nodes
  17. DOXORUBICIN [Suspect]
     Active Substance: DOXORUBICIN
     Indication: Intestinal metastasis
  18. DOXORUBICIN [Suspect]
     Active Substance: DOXORUBICIN
     Indication: Metastases to peritoneum
  19. VINBLASTINE [Suspect]
     Active Substance: VINBLASTINE
     Indication: Hodgkin^s disease
     Dosage: 4 CYCLES
     Route: 065
     Dates: start: 2018, end: 2018
  20. VINBLASTINE [Suspect]
     Active Substance: VINBLASTINE
     Indication: Metastases to adrenals
  21. VINBLASTINE [Suspect]
     Active Substance: VINBLASTINE
     Indication: Metastases to liver
  22. VINBLASTINE [Suspect]
     Active Substance: VINBLASTINE
     Indication: Metastases to lymph nodes
  23. VINBLASTINE [Suspect]
     Active Substance: VINBLASTINE
     Indication: Intestinal metastasis
  24. VINBLASTINE [Suspect]
     Active Substance: VINBLASTINE
     Indication: Metastases to peritoneum

REACTIONS (1)
  - Febrile neutropenia [Unknown]

NARRATIVE: CASE EVENT DATE: 20180101
